FAERS Safety Report 16980240 (Version 1)
Quarter: 2019Q4

REPORT INFORMATION
  Report Type: Spontaneous
  Country: US (occurrence: US)
  Receive Date: 20191031
  Receipt Date: 20191031
  Transmission Date: 20200122
  Serious: No
  Sender: FDA-Public Use
  Company Number: US-009507513-1910USA016808

PATIENT
  Age: 3 Year
  Sex: Male

DRUGS (4)
  1. ASMANEX HFA [Suspect]
     Active Substance: MOMETASONE FUROATE
     Indication: CHRONIC RESPIRATORY DISEASE
     Dosage: 2 PUFFS, BID; ROUTE OF ADMINISTRATION: INHALES THROUGH NOSE AND MOUTH
  2. ASMANEX HFA [Suspect]
     Active Substance: MOMETASONE FUROATE
     Dosage: 1 PUFF, BID; ROUTE OF ADMINISTRATION: INHALES THROUGH NOSE AND MOUTH
  3. ALBUTEROL. [Concomitant]
     Active Substance: ALBUTEROL
     Dosage: UNK
  4. ASMANEX HFA [Suspect]
     Active Substance: MOMETASONE FUROATE
     Dosage: 2 PUFFS, BID; ROUTE OF ADMINISTRATION: INHALES THROUGH NOSE AND MOUTH

REACTIONS (3)
  - Product administered to patient of inappropriate age [Unknown]
  - Skin irritation [Not Recovered/Not Resolved]
  - Incorrect route of product administration [Unknown]

NARRATIVE: CASE EVENT DATE: 201903
